FAERS Safety Report 7121590-4 (Version None)
Quarter: 2010Q4

REPORT INFORMATION
  Report Type: 
  Country: None (occurrence: None)
  Receive Date: 20101124
  Receipt Date: 20101111
  Transmission Date: 20110411
  Serious: Yes (Hospitalization, Other)
  Sender: FDA-Public Use
  Company Number: US-ELI_LILLY_AND_COMPANY-US201007004751

PATIENT
  Sex: Male

DRUGS (1)
  1. FORTEO [Suspect]

REACTIONS (9)
  - BLOOD PRESSURE DECREASED [None]
  - COUGH [None]
  - DIABETES MELLITUS [None]
  - HEADACHE [None]
  - MUSCLE FATIGUE [None]
  - PAIN [None]
  - PYREXIA [None]
  - STAPHYLOCOCCAL INFECTION [None]
  - WEIGHT DECREASED [None]
